FAERS Safety Report 14375006 (Version 2)
Quarter: 2018Q4

REPORT INFORMATION
  Report Type: Spontaneous
  Country: US (occurrence: US)
  Receive Date: 20180111
  Receipt Date: 20181001
  Transmission Date: 20190204
  Serious: No
  Sender: FDA-Public Use
  Company Number: US-PFIZER INC-2018011797

PATIENT
  Age: 15 Year
  Sex: Male

DRUGS (1)
  1. GENOTROPIN [Suspect]
     Active Substance: SOMATROPIN
     Indication: BLOOD GROWTH HORMONE
     Dosage: 1.8 MG, DAILY
     Dates: start: 20150814

REACTIONS (8)
  - Diarrhoea [Unknown]
  - Back pain [Unknown]
  - Blood glucose increased [Unknown]
  - Nausea [Unknown]
  - Arthralgia [Unknown]
  - Abdominal pain [Recovered/Resolved]
  - Joint swelling [Unknown]
  - Thirst [Unknown]

NARRATIVE: CASE EVENT DATE: 20180814
